FAERS Safety Report 5836184-8 (Version None)
Quarter: 2008Q3

REPORT INFORMATION
  Report Type: 
  Country: None (occurrence: None)
  Receive Date: 20080805
  Receipt Date: 20080722
  Transmission Date: 20090109
  Serious: Yes (Hospitalization)
  Sender: FDA-Public Use
  Company Number: 2008001730

PATIENT
  Age: 68 Year
  Sex: Female
  Weight: 54.7 kg

DRUGS (3)
  1. ERLOTINIB (ERLOTINIB) (TABLET) (ERLOTINIB) [Suspect]
     Indication: LUNG ADENOCARCINOMA
     Dosage: (150 MG, QD), ORAL
     Route: 048
     Dates: start: 20080709
  2. PACLITAXEL [Suspect]
     Indication: LUNG ADENOCARCINOMA
     Dosage: (200 MG/M2, OVER 3 HOURS DAY 1), INTRAVENOUS
     Route: 042
     Dates: start: 20080709
  3. CARBOPLATIN [Suspect]
     Indication: LUNG ADENOCARCINOMA
     Dosage: (AUC 6 IV OVER 15-30 MIN ON DAY 1), INTRAVENOUS
     Route: 042
     Dates: start: 20080709

REACTIONS (1)
  - FEBRILE NEUTROPENIA [None]
